FAERS Safety Report 9667108 (Version 1)
Quarter: 2013Q4

REPORT INFORMATION
  Report Type: Spontaneous
  Country: US (occurrence: US)
  Receive Date: 20131104
  Receipt Date: 20131104
  Transmission Date: 20140711
  Serious: No
  Sender: FDA-Public Use
  Company Number: US-BIOGENIDEC-2013BI089845

PATIENT
  Age: 50 Year
  Sex: Female
  Weight: 68 kg

DRUGS (11)
  1. TECFIDERA [Suspect]
     Indication: MULTIPLE SCLEROSIS
     Route: 048
  2. TECFIDERA [Suspect]
     Indication: MULTIPLE SCLEROSIS
     Route: 048
  3. TECFIDERA [Suspect]
     Indication: MULTIPLE SCLEROSIS
     Route: 048
  4. ATARAX [Concomitant]
  5. PREDNISONE [Concomitant]
  6. METFORMIN [Concomitant]
  7. SIMVISTATIN [Concomitant]
  8. PROZAC [Concomitant]
  9. FISH OIL CAP [Concomitant]
  10. VITAMIN D [Concomitant]
  11. CALCIUM + D [Concomitant]

REACTIONS (12)
  - Urticaria [Not Recovered/Not Resolved]
  - Cough [Unknown]
  - Eructation [Unknown]
  - Chest discomfort [Unknown]
  - Scratch [Unknown]
  - Skin tightness [Unknown]
  - Pain in extremity [Unknown]
  - Erythema [Unknown]
  - Rash [Unknown]
  - Dyspepsia [Unknown]
  - Nausea [Unknown]
  - Rash pruritic [Unknown]
